FAERS Safety Report 4376339-5 (Version None)
Quarter: 2004Q2

REPORT INFORMATION
  Report Type: 
  Country: None (occurrence: None)
  Receive Date: 20040602
  Receipt Date: 20030507
  Transmission Date: 20050107
  Serious: Yes (Other)
  Sender: FDA-Public Use
  Company Number: NSADSS2003022511

PATIENT
  Age: 41 Year
  Sex: Male

DRUGS (1)
  1. SPORANOX [Suspect]
     Indication: FUNGAL INFECTION
     Dosage: 200 MG, ORAL
     Route: 048
     Dates: start: 20020913, end: 20020913

REACTIONS (1)
  - ANAPHYLACTOID REACTION [None]
